FAERS Safety Report 7528736-4 (Version None)
Quarter: 2011Q2

REPORT INFORMATION
  Report Type: 
  Country: None (occurrence: None)
  Receive Date: 20110607
  Receipt Date: 20110526
  Transmission Date: 20111010
  Serious: Yes (Other)
  Sender: FDA-Public Use
  Company Number: FR-ASTRAZENECA-2011SE33031

PATIENT
  Age: 30772 Day
  Sex: Male

DRUGS (3)
  1. LIPANOR [Suspect]
     Route: 048
  2. CASODEX [Suspect]
     Route: 048
  3. HYPERIUM [Suspect]
     Route: 048

REACTIONS (1)
  - ANAPHYLACTIC SHOCK [None]
